FAERS Safety Report 7482176-5 (Version None)
Quarter: 2011Q2

REPORT INFORMATION
  Report Type: 
  Country: None (occurrence: None)
  Receive Date: 20110516
  Receipt Date: 20110510
  Transmission Date: 20111010
  Serious: Yes (Other)
  Sender: FDA-Public Use
  Company Number: US-PFIZER INC-2011067372

PATIENT
  Sex: Male

DRUGS (3)
  1. GABAPENTIN [Suspect]
     Indication: ARTHRALGIA
     Dosage: 300-600 MG
     Route: 048
     Dates: start: 20090801, end: 20110401
  2. CELEBREX [Concomitant]
     Dosage: UNK
  3. ACETAMINOPHEN [Concomitant]
     Dosage: UNK

REACTIONS (6)
  - PANIC ATTACK [None]
  - DIPLOPIA [None]
  - VISION BLURRED [None]
  - AMNESIA [None]
  - POLLAKIURIA [None]
  - ANXIETY [None]
